FAERS Safety Report 6741065-1 (Version None)
Quarter: 2010Q2

REPORT INFORMATION
  Report Type: 
  Country: None (occurrence: None)
  Receive Date: 20100525
  Receipt Date: 20100525
  Transmission Date: 20101027
  Serious: Yes (Other)
  Sender: FDA-Public Use
  Company Number: None

PATIENT
  Age: 55 Year
  Sex: Female
  Weight: 74.8435 kg

DRUGS (1)
  1. LEXAPRO [Suspect]
     Indication: DEPRESSION
     Dosage: 10 MD QD PO
     Route: 048
     Dates: start: 20090520, end: 20090920

REACTIONS (3)
  - DRY EYE [None]
  - RETINAL TEAR [None]
  - VISION BLURRED [None]
